FAERS Safety Report 16699759 (Version 2)
Quarter: 2019Q3

REPORT INFORMATION
  Report Type: Report from Study
  Country: JP (occurrence: JP)
  Receive Date: 20190813
  Receipt Date: 20190912
  Transmission Date: 20191004
  Serious: Yes (Hospitalization)
  Sender: FDA-Public Use
  Company Number: JP-ELI_LILLY_AND_COMPANY-JP201908000809

PATIENT
  Age: 74 Year
  Sex: Female

DRUGS (7)
  1. BARICITINIB [Suspect]
     Active Substance: BARICITINIB
     Indication: RHEUMATOID ARTHRITIS
     Dosage: 2 MG, DAILY
     Route: 048
     Dates: start: 20190205, end: 20190801
  2. PREDNISOLONE. [Concomitant]
     Active Substance: PREDNISOLONE
     Indication: RHEUMATOID ARTHRITIS
     Dosage: 3 MG, DAILY
     Route: 048
  3. METHYLPREDNISOLONE. [Concomitant]
     Active Substance: METHYLPREDNISOLONE
     Indication: RHEUMATOID ARTHRITIS
     Dosage: 16 MG, OTHER
     Route: 048
  4. FOLIAMIN [Concomitant]
     Active Substance: FOLIC ACID
     Indication: PROPHYLAXIS
     Route: 048
  5. METHOTREXATE. [Concomitant]
     Active Substance: METHOTREXATE
     Indication: RHEUMATOID ARTHRITIS
     Dosage: 14 MG, WEEKLY (1/W)
     Route: 048
     Dates: start: 20170801, end: 20190731
  6. TAKEPRON [Concomitant]
     Active Substance: LANSOPRAZOLE
     Indication: PROPHYLAXIS
     Dosage: UNK
     Route: 048
  7. REBAMIPIDE [Concomitant]
     Active Substance: REBAMIPIDE
     Indication: PROPHYLAXIS
     Route: 048

REACTIONS (2)
  - Decreased appetite [Unknown]
  - Vomiting [Unknown]

NARRATIVE: CASE EVENT DATE: 20190708
